FAERS Safety Report 6370903-X (Version None)
Quarter: 2009Q3

REPORT INFORMATION
  Report Type: 
  Country: None (occurrence: None)
  Receive Date: 20090923
  Receipt Date: 20071004
  Transmission Date: 20100115
  Serious: No
  Sender: FDA-Public Use
  Company Number: US-ASTRAZENECA-2006UW23018

PATIENT
  Age: 13827 Day
  Sex: Female
  Weight: 109.3 kg

DRUGS (21)
  1. SEROQUEL [Suspect]
     Indication: BIPOLAR DISORDER
     Route: 048
     Dates: start: 20040101
  2. SEROQUEL [Suspect]
     Indication: DEPRESSION
     Route: 048
     Dates: start: 20040101
  3. SEROQUEL [Suspect]
     Indication: INSOMNIA
     Route: 048
     Dates: start: 20040101
  4. SEROQUEL [Suspect]
     Dosage: 200MG-250 MG
     Route: 048
     Dates: start: 20040526, end: 20060327
  5. SEROQUEL [Suspect]
     Dosage: 200MG-250 MG
     Route: 048
     Dates: start: 20040526, end: 20060327
  6. SEROQUEL [Suspect]
     Dosage: 200MG-250 MG
     Route: 048
     Dates: start: 20040526, end: 20060327
  7. LAMICTAL [Concomitant]
     Route: 048
  8. LITHIUM CARBONATE [Concomitant]
     Route: 048
  9. EFFEXOR [Concomitant]
     Dosage: 100MG-150MG TWO TIMES A DAY
     Route: 048
  10. TRAZODONE [Concomitant]
     Dosage: 25MG-75 MG AT NIGHT
     Route: 048
  11. STRATTERA [Concomitant]
     Route: 048
  12. RITALIN [Concomitant]
     Dosage: 10MG- 20MG DAILY
     Route: 048
  13. VISTARIL [Concomitant]
     Dosage: 50MG -100 MG DAILY
     Route: 048
  14. PAXIL [Concomitant]
     Route: 048
  15. ZYRTEC [Concomitant]
  16. SYNTHROID [Concomitant]
     Route: 048
  17. LIPITOR [Concomitant]
     Route: 048
  18. DITROPAN XL [Concomitant]
     Indication: HYPERTONIC BLADDER
     Route: 048
  19. PRILOSEC [Concomitant]
     Route: 048
  20. GLUCOTROL XL [Concomitant]
     Route: 048
     Dates: start: 20051221
  21. NASONEX [Concomitant]
     Dosage: 2 SPRAY EACH NOSTRIL DAILY
     Route: 045

REACTIONS (8)
  - CHEST PAIN [None]
  - DIABETES MELLITUS [None]
  - DYSURIA [None]
  - GASTROOESOPHAGEAL REFLUX DISEASE [None]
  - HYPERTONIC BLADDER [None]
  - RESTLESS LEGS SYNDROME [None]
  - SLEEP APNOEA SYNDROME [None]
  - URINARY TRACT INFECTION [None]
